FAERS Safety Report 8111816-2 (Version None)
Quarter: 2012Q1

REPORT INFORMATION
  Report Type: 
  Country: None (occurrence: None)
  Receive Date: 20120203
  Receipt Date: 20120131
  Transmission Date: 20120608
  Serious: Yes (Other)
  Sender: FDA-Public Use
  Company Number: US-PFIZER INC-2012026627

PATIENT
  Sex: Female
  Weight: 70.295 kg

DRUGS (3)
  1. OXYGEN [Concomitant]
     Indication: CHRONIC OBSTRUCTIVE PULMONARY DISEASE
     Dosage: UNK
  2. IBUPROFEN (ADVIL) [Suspect]
     Indication: HEADACHE
     Dosage: UNK
     Route: 048
     Dates: start: 20111201, end: 20120101
  3. IBUPROFEN (ADVIL) [Suspect]
     Indication: PAIN
     Dosage: UNK
     Dates: start: 20120130

REACTIONS (5)
  - LOSS OF CONSCIOUSNESS [None]
  - PAIN [None]
  - DECREASED APPETITE [None]
  - HYPOTENSION [None]
  - HEADACHE [None]
